FAERS Safety Report 8934319 (Version 1)
Quarter: 2012Q4

REPORT INFORMATION
  Report Type: 
  Country: US (occurrence: US)
  Receive Date: 20121129
  Receipt Date: 20121129
  Transmission Date: 20130627
  Serious: No
  Sender: FDA-Public Use
  Company Number: US-VERTEX PHARMACEUTICAL INC.-2012-025120

PATIENT
  Sex: Male
  Weight: 104 kg

DRUGS (8)
  1. VX-950 (TELAPREVIR) [Suspect]
     Indication: HEPATITIS C
     Dosage: 750 mg, tid
     Route: 048
     Dates: start: 20120327
  2. PEGASYS [Concomitant]
     Indication: HEPATITIS C
     Dosage: 180 ?g, weekly
     Route: 058
     Dates: start: 20120327
  3. RIBAPAK [Concomitant]
     Indication: HEPATITIS C
     Dosage: 600 mg, bid
     Dates: start: 20120327
  4. CLARINEX                           /01202601/ [Concomitant]
     Dosage: 5 mg, qd
     Route: 048
  5. FISH OIL [Concomitant]
     Dosage: 1000 mg, qd
     Route: 048
  6. NASONEX [Concomitant]
     Dosage: 50 ?g, prn
  7. MILK THISTLE [Concomitant]
     Dosage: 150 mg, qd
     Route: 048
  8. MULTIVITAMIN                       /00097801/ [Concomitant]
     Dosage: 1 DF, qd
     Route: 048

REACTIONS (1)
  - Insomnia [Unknown]
